FAERS Safety Report 10528283 (Version 1)
Quarter: 2014Q4

REPORT INFORMATION
  Report Type: Spontaneous
  Country: US (occurrence: US)
  Receive Date: 20141020
  Receipt Date: 20141020
  Transmission Date: 20150528
  Serious: Yes (Death, Hospitalization, Other)
  Sender: FDA-Public Use
  Company Number: US-ACTAVIS-2014-22057

PATIENT
  Age: 75 Year
  Sex: Male

DRUGS (2)
  1. DOBUTAMINE HYDROCHLORIDE (WATSON LABORATORIES) [Suspect]
     Active Substance: DOBUTAMINE HYDROCHLORIDE
     Indication: CARDIAC STRESS TEST
     Dosage: 30 MCG/KG/MIN
     Route: 042
  2. ACETYLSALICYLIC ACID (UNKNOWN) [Suspect]
     Active Substance: ASPIRIN
     Indication: CORONARY ARTERY RESTENOSIS
     Dosage: 81 MG, DAILY
     Route: 065

REACTIONS (5)
  - Post procedural stroke [Fatal]
  - Brain herniation [Fatal]
  - Subdural haematoma [Fatal]
  - Hypertension [Fatal]
  - Sinus tachycardia [Unknown]
